FAERS Safety Report 4629151-3 (Version None)
Quarter: 2005Q2

REPORT INFORMATION
  Report Type: 
  Country: None (occurrence: None)
  Receive Date: 20050407
  Receipt Date: 20040831
  Transmission Date: 20051028
  Serious: Yes (Hospitalization)
  Sender: FDA-Public Use
  Company Number: 200412818JP

PATIENT
  Age: 60 Year
  Sex: Female

DRUGS (12)
  1. ARAVA [Suspect]
     Route: 048
     Dates: start: 20030831, end: 20031219
  2. PREDONINE [Concomitant]
     Indication: RHEUMATOID ARTHRITIS
     Route: 048
     Dates: start: 20030914, end: 20030913
  3. MARZULENE [Concomitant]
     Indication: GASTRIC ULCER
     Route: 048
     Dates: end: 20030830
  4. TAGAMET [Concomitant]
     Indication: GASTRIC ULCER
     Route: 048
  5. NORVASC [Concomitant]
     Indication: HYPERTENSION
     Route: 048
  6. LOXONIN [Concomitant]
     Indication: RHEUMATOID ARTHRITIS
     Route: 048
     Dates: end: 20030830
  7. MINOCYCLINE HCL [Concomitant]
     Indication: DERMATITIS INFECTED
     Route: 048
  8. ALFAROL [Concomitant]
     Indication: OSTEOPOROSIS
     Route: 048
     Dates: end: 20030830
  9. BLOPRESS [Concomitant]
     Indication: HYPERTENSION
     Route: 048
  10. BONALON [Concomitant]
     Indication: OSTEOPOROSIS
     Route: 048
  11. VOLTAREN [Concomitant]
     Indication: RHEUMATOID ARTHRITIS
     Route: 054
  12. JUZENTAIHOTO [Concomitant]
     Indication: RHEUMATOID ARTHRITIS
     Route: 048

REACTIONS (6)
  - BLOOD ALKALINE PHOSPHATASE INCREASED [None]
  - BLOOD LACTATE DEHYDROGENASE INCREASED [None]
  - GAMMA-GLUTAMYLTRANSFERASE INCREASED [None]
  - HOSPITALISATION [None]
  - RED BLOOD CELL COUNT DECREASED [None]
  - WHITE BLOOD CELL COUNT INCREASED [None]
